FAERS Safety Report 5157628-3 (Version None)
Quarter: 2006Q4

REPORT INFORMATION
  Report Type: 
  Country: None (occurrence: None)
  Receive Date: 20061127
  Receipt Date: 20060928
  Transmission Date: 20070319
  Serious: Yes (Hospitalization)
  Sender: FDA-Public Use
  Company Number: PHEH2006US12343

PATIENT
  Age: 66 Year
  Sex: Male

DRUGS (7)
  1. EXJADE [Suspect]
     Indication: IRON OVERLOAD
     Dosage: 2000 MG, QD
     Route: 048
     Dates: start: 20060818, end: 20060908
  2. AVAPRO [Concomitant]
     Dosage: 200 MG, QD
     Route: 048
     Dates: start: 20030901
  3. ASPIRIN [Concomitant]
     Dates: start: 20030901
  4. AMARYL [Concomitant]
     Dosage: 2 MG, QD
     Route: 048
     Dates: start: 20050901
  5. LASIX [Concomitant]
     Dosage: 20 MG, QD
     Route: 048
  6. TOPROL-XL [Concomitant]
     Indication: HYPERTENSION
     Dosage: 50 MG, QD
     Route: 048
     Dates: start: 20050901
  7. TRICOR [Concomitant]
     Indication: BLOOD CHOLESTEROL ABNORMAL
     Dosage: 160 MG, QD
     Route: 048
     Dates: start: 20050901

REACTIONS (13)
  - BLISTER [None]
  - CHILLS [None]
  - DYSPNOEA [None]
  - LEUKOCYTOCLASTIC VASCULITIS [None]
  - OEDEMA PERIPHERAL [None]
  - PYREXIA [None]
  - RASH MACULO-PAPULAR [None]
  - SCAB [None]
  - SKIN EXFOLIATION [None]
  - SKIN LESION [None]
  - SUPRAVENTRICULAR TACHYCARDIA [None]
  - SWELLING FACE [None]
  - VOMITING [None]
